FAERS Safety Report 7094601-2 (Version None)
Quarter: 2010Q4

REPORT INFORMATION
  Report Type: 
  Country: None (occurrence: None)
  Receive Date: 20101110
  Receipt Date: 20101102
  Transmission Date: 20110411
  Serious: Yes (Other)
  Sender: FDA-Public Use
  Company Number: US-ROCHE-738990

PATIENT
  Age: 8 Year
  Sex: Female

DRUGS (2)
  1. ACTEMRA [Suspect]
     Dosage: FORM: INFUSION
     Route: 042
     Dates: start: 20101015, end: 20101015
  2. ACTEMRA [Suspect]
     Dosage: DOSE: 15 MG/KG
     Route: 042
     Dates: start: 20101027, end: 20101027

REACTIONS (1)
  - ILL-DEFINED DISORDER [None]
